FAERS Safety Report 11849780 (Version 2)
Quarter: 2016Q1

REPORT INFORMATION
  Report Type: Spontaneous
  Country: US (occurrence: US)
  Receive Date: 20151218
  Receipt Date: 20160116
  Transmission Date: 20160526
  Serious: Yes (Hospitalization, Other)
  Sender: FDA-Public Use
  Company Number: US-009507513-1512USA008426

PATIENT
  Age: 64 Year
  Sex: Female

DRUGS (4)
  1. EMEND [Suspect]
     Active Substance: APREPITANT
     Dosage: UNK
     Dates: start: 20150720, end: 2015
  2. PHENERGAN (DIBROMPROPAMIDINE ISETHIONATE (+) PROMETHAZINE) [Concomitant]
     Dosage: UNK
  3. ZOFRAN [Concomitant]
     Active Substance: ONDANSETRON HYDROCHLORIDE
     Dosage: UNK
  4. MEGACE [Concomitant]
     Active Substance: MEGESTROL ACETATE
     Dosage: UNK

REACTIONS (3)
  - Salpingo-oophorectomy [Recovered/Resolved]
  - Hysterectomy [Recovered/Resolved]
  - Adenocarcinoma [Recovered/Resolved]

NARRATIVE: CASE EVENT DATE: 20151210
